FAERS Safety Report 5968202-0 (Version None)
Quarter: 2008Q4

REPORT INFORMATION
  Report Type: 
  Country: None (occurrence: None)
  Receive Date: 20081126
  Receipt Date: 20081119
  Transmission Date: 20090506
  Serious: Yes (Disabling, Other)
  Sender: FDA-Public Use
  Company Number: A0747941A

PATIENT
  Age: 81 Year
  Sex: Male
  Weight: 131.8 kg

DRUGS (6)
  1. AVODART [Suspect]
     Indication: BENIGN PROSTATIC HYPERPLASIA
     Route: 048
     Dates: start: 20071211, end: 20080822
  2. ASPIRIN [Concomitant]
     Route: 048
  3. MULTI-VITAMIN [Concomitant]
     Route: 048
  4. VITAMIN D [Concomitant]
     Route: 048
  5. GLUCOSAMINE [Concomitant]
     Route: 048
  6. FLOMAX [Concomitant]
     Route: 048
     Dates: start: 20000101, end: 20080822

REACTIONS (3)
  - BREAST CANCER [None]
  - BREAST MASS [None]
  - GYNAECOMASTIA [None]
